FAERS Safety Report 17907985 (Version 1)
Quarter: 2020Q2

REPORT INFORMATION
  Report Type: Spontaneous
  Country: US (occurrence: US)
  Receive Date: 20200617
  Receipt Date: 20200617
  Transmission Date: 20200714
  Serious: Yes (Hospitalization)
  Sender: FDA-Public Use
  Company Number: None

PATIENT
  Age: 30 Year
  Sex: Female
  Weight: 78.02 kg

DRUGS (1)
  1. KYLEENA [Suspect]
     Active Substance: LEVONORGESTREL

REACTIONS (5)
  - Ectopic pregnancy [None]
  - Pregnancy with contraceptive device [None]
  - Foetal exposure during pregnancy [None]
  - Maternal exposure during pregnancy [None]
  - Abortion spontaneous [None]
